FAERS Safety Report 18633080 (Version 1)
Quarter: 2020Q4

REPORT INFORMATION
  Report Type: Spontaneous
  Country: US (occurrence: US)
  Receive Date: 20201217
  Receipt Date: 20201217
  Transmission Date: 20210114
  Serious: Yes (Life-Threatening, Hospitalization)
  Sender: FDA-Public Use
  Company Number: None

PATIENT
  Age: 77 Year
  Sex: Male
  Weight: 82.8 kg

DRUGS (4)
  1. BACTRIM [Suspect]
     Active Substance: SULFAMETHOXAZOLE\TRIMETHOPRIM
     Indication: SKIN INFECTION
     Route: 048
     Dates: start: 20201118, end: 20201205
  2. BACTRIM [Suspect]
     Active Substance: SULFAMETHOXAZOLE\TRIMETHOPRIM
     Indication: SOFT TISSUE DISORDER
     Route: 048
     Dates: start: 20201118, end: 20201205
  3. IBUPROFEN 600 [Concomitant]
     Active Substance: IBUPROFEN
     Dates: start: 20201019
  4. HYDROCODONE-ACETAMINOPHEN 5-325 [Concomitant]
     Dates: start: 20201019

REACTIONS (2)
  - Agranulocytosis [None]
  - Febrile neutropenia [None]

NARRATIVE: CASE EVENT DATE: 20201216
